FAERS Safety Report 9184605 (Version 2)
Quarter: 2013Q1

REPORT INFORMATION
  Report Type: Report from Study
  Country: CA (occurrence: CA)
  Receive Date: 20130324
  Receipt Date: 20130326
  Transmission Date: 20140127
  Serious: Yes (Hospitalization, Other)
  Sender: FDA-Public Use
  Company Number: CA-ROCHE-1202806

PATIENT
  Sex: Male
  Weight: 77.1 kg

DRUGS (9)
  1. RITUXAN [Suspect]
     Indication: RHEUMATOID ARTHRITIS
     Dosage: LAST DOSE RECEIVED ON 01/NOV/2012
     Route: 042
     Dates: start: 20121016
  2. DIPHENHYDRAMINE HCL [Concomitant]
     Indication: PREMEDICATION
     Route: 048
     Dates: start: 20121016
  3. ACETAMINOPHEN [Concomitant]
     Indication: PREMEDICATION
     Route: 048
     Dates: start: 20121016
  4. METHYLPREDNISOLONE [Concomitant]
     Indication: PREMEDICATION
     Route: 042
     Dates: start: 20121016
  5. PREDNISONE [Concomitant]
  6. METHOTREXATE [Concomitant]
  7. FOLIC ACID [Concomitant]
  8. ARAVA [Concomitant]
     Route: 065
     Dates: start: 20120706
  9. SULFASALAZINE [Concomitant]
     Route: 065
     Dates: start: 20120706

REACTIONS (3)
  - Dyspnoea [Recovered/Resolved]
  - Muscle strain [Not Recovered/Not Resolved]
  - Infusion related reaction [Unknown]
